FAERS Safety Report 6112250-7 (Version None)
Quarter: 2009Q1

REPORT INFORMATION
  Report Type: 
  Country: None (occurrence: None)
  Receive Date: 20090310
  Receipt Date: 20090227
  Transmission Date: 20090719
  Serious: Yes (Hospitalization)
  Sender: FDA-Public Use
  Company Number: PAR_02861_2009

PATIENT
  Sex: Male

DRUGS (12)
  1. IBUPROFEN [Suspect]
     Indication: PAIN
     Dosage: (DF ORAL)
     Route: 048
     Dates: start: 20080601, end: 20080711
  2. ASPIRIN [Suspect]
     Indication: MYOCARDIAL ISCHAEMIA
     Dosage: (100 MG QD ORAL)
     Route: 048
  3. PHENPROCOUMON [Suspect]
     Indication: CARDIAC VALVE PROSTHESIS USER
     Dosage: (3 MG PRN ORAL)
     Route: 048
     Dates: start: 19990101
  4. DIGOXIN [Concomitant]
  5. BISOPROLOL FUMARATE [Suspect]
  6. RAMIPRIL [Concomitant]
  7. TORSEMIDE [Suspect]
  8. SPIRONOLACTONE [Concomitant]
  9. GLYCERYL TRINITRATE [Concomitant]
  10. PANTOPRAZOLE SODIUM [Concomitant]
  11. BONIVA [Concomitant]
  12. INSULIN [Concomitant]

REACTIONS (9)
  - BLOOD PRESSURE DIASTOLIC DECREASED [None]
  - COLONIC POLYP [None]
  - DIVERTICULUM [None]
  - DRUG INTERACTION [None]
  - GASTRITIS EROSIVE [None]
  - GASTROINTESTINAL HAEMORRHAGE [None]
  - INTERNATIONAL NORMALISED RATIO INCREASED [None]
  - MEDICATION ERROR [None]
  - PROTHROMBIN TIME PROLONGED [None]
